FAERS Safety Report 9201913 (Version 2)
Quarter: 2013Q2

REPORT INFORMATION
  Report Type: Spontaneous
  Country: US (occurrence: None)
  Receive Date: 20130328
  Receipt Date: 20130402
  Transmission Date: 20140414
  Serious: Yes (Hospitalization, Other)
  Sender: FDA-Public Use
  Company Number: USA/USA/13/0028671

PATIENT
  Age: 14 Month
  Sex: Female

DRUGS (2)
  1. TACROLIMUS [Suspect]
     Indication: LIVER TRANSPLANT
     Dosage: STOPPED
     Route: 048
  2. PREDNISONE (PREDNISONE) [Suspect]
     Indication: LIVER TRANSPLANT

REACTIONS (8)
  - Posterior reversible encephalopathy syndrome [None]
  - Liver transplant rejection [None]
  - Hypertension [None]
  - Hypomagnesaemia [None]
  - Transaminases increased [None]
  - Heart rate increased [None]
  - Respiratory rate increased [None]
  - Partial seizures [None]
